FAERS Safety Report 6316693-8 (Version None)
Quarter: 2009Q3

REPORT INFORMATION
  Report Type: 
  Country: None (occurrence: None)
  Receive Date: 20090820
  Receipt Date: 20090818
  Transmission Date: 20100115
  Serious: Yes (Death, Life-Threatening, Hospitalization, Disabling)
  Sender: FDA-Public Use
  Company Number: IL-BRISTOL-MYERS SQUIBB COMPANY-14657977

PATIENT
  Age: 65 Year
  Sex: Female
  Weight: 63 kg

DRUGS (7)
  1. CETUXIMAB [Suspect]
     Indication: NON-SMALL CELL LUNG CANCER
     Dosage: 5MG/ML; INTERRUPTED ON 07JUN09
     Route: 042
     Dates: start: 20090531
  2. PACLITAXEL [Suspect]
     Indication: NON-SMALL CELL LUNG CANCER
     Route: 042
     Dates: start: 20090531
  3. CARBOPLATIN [Suspect]
     Indication: NON-SMALL CELL LUNG CANCER
     Dosage: 1 DF- 6 AUC
     Route: 042
     Dates: start: 20090531
  4. DEXAMETHASONE [Concomitant]
     Dosage: ALSO GIVEN ON IV ROUTE,31MAY09-20MG
     Route: 048
     Dates: start: 20090530
  5. CIMETIDINE [Concomitant]
     Dosage: ALSO GIVEN ON IV ROUTE,31MAY09-400MG
     Route: 048
     Dates: start: 20090530
  6. ZOFRAN [Concomitant]
     Route: 042
     Dates: start: 20090531
  7. DILATAM [Concomitant]
     Route: 048
     Dates: start: 20080101

REACTIONS (3)
  - ATRIAL FIBRILLATION [None]
  - DIARRHOEA [None]
  - NEUTROPENIC SEPSIS [None]
